FAERS Safety Report 14659342 (Version 1)
Quarter: 2018Q1

REPORT INFORMATION
  Report Type: Spontaneous
  Country: US (occurrence: US)
  Receive Date: 20180317
  Receipt Date: 20180317
  Transmission Date: 20180509
  Serious: No
  Sender: FDA-Public Use
  Company Number: None

PATIENT
  Age: 32 Year
  Sex: Female

DRUGS (1)
  1. HUMIRA [Suspect]
     Active Substance: ADALIMUMAB
     Indication: ILL-DEFINED DISORDER
     Dosage: 40  MG EVERY OTHER WEEK
     Route: 058
     Dates: start: 20180119

REACTIONS (2)
  - Fatigue [None]
  - Sinus disorder [None]

NARRATIVE: CASE EVENT DATE: 20180120
